FAERS Safety Report 5340682-3 (Version None)
Quarter: 2007Q2

REPORT INFORMATION
  Report Type: 
  Country: None (occurrence: None)
  Receive Date: 20070405
  Receipt Date: 20061201
  Transmission Date: 20071010
  Serious: No
  Sender: FDA-Public Use
  Company Number: US200612000422

PATIENT
  Sex: Female

DRUGS (2)
  1. CYMBALTA [Suspect]
     Indication: DEPRESSION
     Dosage: 60 MG, DAILY (1/D)
     Dates: start: 20051201
  2. NEXIUM [Concomitant]

REACTIONS (3)
  - CATARACT OPERATION [None]
  - EYE INFECTION [None]
  - MACULAR OEDEMA [None]
